FAERS Safety Report 9315289 (Version 1)
Quarter: 2013Q2

REPORT INFORMATION
  Report Type: Spontaneous
  Country: US (occurrence: US)
  Receive Date: 20130529
  Receipt Date: 20130529
  Transmission Date: 20140414
  Serious: Yes (Hospitalization)
  Sender: FDA-Public Use
  Company Number: US-B.I. PHARMACEUTICALS,INC./RIDGEFIELD-2013-BI-14928BP

PATIENT
  Age: 12 Year
  Sex: Male
  Weight: 69.8 kg

DRUGS (7)
  1. CATAPRES [Suspect]
     Indication: AFFECTIVE DISORDER
     Dosage: 0.2 MG
     Route: 048
     Dates: start: 20120301
  2. PROZAC (FLUOXETIN HYDROCHLORIDE) [Suspect]
     Indication: AFFECTIVE DISORDER
     Dosage: 10 MG
     Route: 048
     Dates: start: 20121108
  3. VYVANSE (LISDEXAMFETAMINE DIMESYLATE) [Suspect]
     Indication: AFFECTIVE DISORDER
     Dosage: 20 MG
     Route: 048
     Dates: start: 20130123
  4. VYVANSE (LISDEXAMFETAMINE DIMESYLATE) [Suspect]
     Dosage: 60 MG
     Route: 048
  5. DESYREL (TRAZODONE HYDROCHLORIDE) [Suspect]
     Indication: AFFECTIVE DISORDER
     Dosage: 12.5 MG
     Route: 048
     Dates: start: 20130108
  6. DEPAKOTE (VALPROATE SEMISODIUM) [Suspect]
     Indication: AFFECTIVE DISORDER
     Dosage: 600 MG
     Route: 048
     Dates: start: 20120301
  7. MENINGOCOCCAL GROUP B RLP2086 [Concomitant]
     Indication: PROPHYLAXIS
     Dates: start: 20121207, end: 20121207

REACTIONS (3)
  - Affective disorder [Recovered/Resolved]
  - Aggression [None]
  - Aggression [None]
